FAERS Safety Report 11453587 (Version 1)
Quarter: 2015Q3

REPORT INFORMATION
  Report Type: Spontaneous
  Country: US (occurrence: US)
  Receive Date: 20150831
  Receipt Date: 20150831
  Transmission Date: 20151125
  Serious: No
  Sender: FDA-Public Use
  Company Number: US-ELI_LILLY_AND_COMPANY-US200912002053

PATIENT
  Sex: Female

DRUGS (3)
  1. NEURONTIN /USA/ [Concomitant]
     Dosage: UNK, UNK
  2. SKELAXIN [Concomitant]
     Active Substance: METAXALONE
  3. CYMBALTA [Suspect]
     Active Substance: DULOXETINE HYDROCHLORIDE
     Dosage: 60 MG, UNK
     Route: 048

REACTIONS (2)
  - Myotonia [Unknown]
  - Weight increased [Unknown]
